FAERS Safety Report 19389830 (Version 1)
Quarter: 2021Q2

REPORT INFORMATION
  Report Type: Spontaneous
  Country: ES (occurrence: ES)
  Receive Date: 20210608
  Receipt Date: 20210608
  Transmission Date: 20210717
  Serious: No
  Sender: FDA-Public Use
  Company Number: ES-MYLANLABS-2021M1032719

PATIENT
  Sex: Male

DRUGS (1)
  1. ALTELLUS 300 MICROGRAMOS ADULTOS, SOLUCI?N INYECTABLE [Suspect]
     Active Substance: EPINEPHRINE
     Indication: PRODUCT USED FOR UNKNOWN INDICATION
     Dosage: UNK

REACTIONS (2)
  - Product quality issue [None]
  - Device leakage [None]
